FAERS Safety Report 9247393 (Version 2)
Quarter: 2013Q2

REPORT INFORMATION
  Report Type: Report from Study
  Country: NG (occurrence: NG)
  Receive Date: 20130423
  Receipt Date: 20130502
  Transmission Date: 20140414
  Serious: Yes (Disabling)
  Sender: FDA-Public Use
  Company Number: NG-009507513-1208NGA000034

PATIENT
  Age: 25 Year
  Sex: Female

DRUGS (6)
  1. RITONAVIR-BOOSTED LOPINAVIR [Suspect]
     Dosage: UNK
     Dates: start: 20110304
  2. COMBIVIR [Suspect]
     Indication: HIV INFECTION
     Dosage: UNK
     Dates: start: 20111207
  3. SAQUINAVIR [Suspect]
     Indication: HIV INFECTION
     Dosage: 1000 MG, QD
     Dates: start: 20111207
  4. SULFAMETHOXAZOLE (+) TRIMETHOPRIM [Concomitant]
     Indication: ANTIFUNGAL PROPHYLAXIS
     Dosage: 960 MG, UNK
     Dates: start: 20120304
  5. NEUROVIT (PYRIDOXINE (+) THIAMINE) [Concomitant]
     Indication: NEUROPATHY PERIPHERAL
     Dosage: UNK
     Dates: start: 20120601, end: 20120704
  6. MEBENDAZOLE [Concomitant]
     Indication: ANTIEMETIC SUPPORTIVE CARE
     Dosage: 500 MG, QD
     Dates: start: 20120725, end: 20120725

REACTIONS (5)
  - Pregnancy [Recovered/Resolved]
  - Premature delivery [Unknown]
  - Cerebral toxoplasmosis [Not Recovered/Not Resolved]
  - Cerebrovascular accident [Not Recovered/Not Resolved]
  - Exposure during pregnancy [None]
